FAERS Safety Report 24013316 (Version 1)
Quarter: 2024Q2

REPORT INFORMATION
  Report Type: Spontaneous
  Country: NP (occurrence: NP)
  Receive Date: 20240626
  Receipt Date: 20240626
  Transmission Date: 20240716
  Serious: No
  Sender: FDA-Public Use
  Company Number: NP-ALKEM LABORATORIES LIMITED-NP-ALKEM-2024-04874

PATIENT
  Age: 60 Year
  Sex: Female

DRUGS (1)
  1. AMLODIPINE BESYLATE [Suspect]
     Active Substance: AMLODIPINE BESYLATE
     Indication: Hypertension
     Dosage: 5 MILLIGRAM, (AMLOD) TABLET
     Route: 065

REACTIONS (1)
  - Gingival hypertrophy [Recovering/Resolving]
